FAERS Safety Report 7121673-9 (Version None)
Quarter: 2010Q4

REPORT INFORMATION
  Report Type: 
  Country: None (occurrence: None)
  Receive Date: 20101124
  Receipt Date: 20101115
  Transmission Date: 20110411
  Serious: Yes (Other)
  Sender: FDA-Public Use
  Company Number: US-PFIZER INC-2010149274

PATIENT
  Sex: Female
  Weight: 52.154 kg

DRUGS (2)
  1. LYRICA [Suspect]
     Indication: NERVE INJURY
     Dosage: 100MG AM, 200MG PM
     Dates: start: 20080101, end: 20101001
  2. VYTORIN [Concomitant]
     Dosage: UNK
     Dates: end: 20100101

REACTIONS (7)
  - DRUG INEFFECTIVE [None]
  - FEELING HOT [None]
  - HYPERHIDROSIS [None]
  - INSOMNIA [None]
  - MIDDLE INSOMNIA [None]
  - MOOD SWINGS [None]
  - PRURITUS [None]
